FAERS Safety Report 8261474 (Version 2)
Quarter: 2014Q3

REPORT INFORMATION
  Report Type: Spontaneous
  Country: US (occurrence: US)
  Receive Date: 20111123
  Receipt Date: 20140730
  Transmission Date: 20150326
  Serious: Yes (Hospitalization)
  Sender: FDA-Public Use
  Company Number: US-GLAXOSMITHKLINE-A0871659A

PATIENT
  Age: 63 Year
  Sex: Male

DRUGS (1)
  1. AVANDIA [Suspect]
     Active Substance: ROSIGLITAZONE MALEATE
     Indication: DIABETES MELLITUS
     Dosage: 4MG PER DAY
     Route: 048
     Dates: start: 20021220, end: 20070522

REACTIONS (4)
  - Myocardial infarction [Not Recovered/Not Resolved]
  - Emotional distress [Unknown]
  - Cardiac disorder [Unknown]
  - Injury [Unknown]

NARRATIVE: CASE EVENT DATE: 20060918
